FAERS Safety Report 13900715 (Version 1)
Quarter: 2017Q3

REPORT INFORMATION
  Report Type: Report from Study
  Country: US (occurrence: US)
  Receive Date: 20170824
  Receipt Date: 20170824
  Transmission Date: 20171127
  Serious: Yes (Death, Life-Threatening, Hospitalization)
  Sender: FDA-Public Use
  Company Number: US-B.I. PHARMACEUTICALS,INC./RIDGEFIELD-2015-BI-39699BP

PATIENT
  Age: 73 Year
  Sex: Male

DRUGS (3)
  1. OFEV [Suspect]
     Active Substance: NINTEDANIB
     Route: 048
     Dates: start: 20150801
  2. OFEV [Suspect]
     Active Substance: NINTEDANIB
     Route: 048
  3. OFEV [Suspect]
     Active Substance: NINTEDANIB
     Indication: IDIOPATHIC PULMONARY FIBROSIS
     Route: 048
     Dates: start: 20150720

REACTIONS (24)
  - Idiopathic pulmonary fibrosis [Fatal]
  - Fatigue [Unknown]
  - Vomiting [Recovered/Resolved]
  - Nausea [Unknown]
  - Productive cough [Unknown]
  - Dyspnoea [Not Recovered/Not Resolved]
  - Abdominal distension [Unknown]
  - Stent placement [Unknown]
  - Diarrhoea [Not Recovered/Not Resolved]
  - Dental caries [Unknown]
  - Secretion discharge [Unknown]
  - Vomiting [Unknown]
  - Diarrhoea [Unknown]
  - Epistaxis [Not Recovered/Not Resolved]
  - Dyspnoea [Unknown]
  - Decreased appetite [Unknown]
  - Rhinorrhoea [Unknown]
  - Faeces soft [Unknown]
  - Weight decreased [Not Recovered/Not Resolved]
  - Weight decreased [Unknown]
  - Cough [Unknown]
  - Sputum increased [Unknown]
  - Abdominal pain upper [Unknown]
  - Drug ineffective [Unknown]

NARRATIVE: CASE EVENT DATE: 20160108
